FAERS Safety Report 4421170-5 (Version None)
Quarter: 2004Q3

REPORT INFORMATION
  Report Type: 
  Country: None (occurrence: None)
  Receive Date: 20040708
  Receipt Date: 20040622
  Transmission Date: 20050211
  Serious: Yes (Hospitalization)
  Sender: FDA-Public Use
  Company Number: US065387

PATIENT
  Age: 60 Year
  Sex: Male

DRUGS (8)
  1. KINERET [Suspect]
     Indication: RHEUMATOID ARTHRITIS
     Dosage: 100 MG, 1 IN 1 DAYS, SC
     Route: 058
     Dates: start: 20020701, end: 20031216
  2. VENLAFAXINE HCL [Concomitant]
  3. BISOPROLOL FUMARATE [Concomitant]
  4. CELECOXIB [Concomitant]
  5. FOLIC ACID [Concomitant]
  6. PREDNISONE [Concomitant]
  7. PREDNISONE [Concomitant]
  8. TRAMADOL HYDROCHLORIDE [Concomitant]

REACTIONS (1)
  - ARTHRITIS INFECTIVE [None]
